FAERS Safety Report 5588318-0 (Version None)
Quarter: 2008Q1

REPORT INFORMATION
  Report Type: 
  Country: None (occurrence: None)
  Receive Date: 20080111
  Receipt Date: 20080104
  Transmission Date: 20080703
  Serious: Yes (Hospitalization)
  Sender: FDA-Public Use
  Company Number: GB-ELI_LILLY_AND_COMPANY-GB200711006219

PATIENT
  Sex: Male

DRUGS (1)
  1. OLANZAPINE [Suspect]
     Dosage: 10 MG, UNK
     Route: 048
     Dates: start: 20050101, end: 20071119

REACTIONS (7)
  - BLOOD ELECTROLYTES ABNORMAL [None]
  - DECREASED APPETITE [None]
  - DIABETES WITH HYPEROSMOLARITY [None]
  - NEGLECT OF PERSONAL APPEARANCE [None]
  - RENAL FAILURE ACUTE [None]
  - RHABDOMYOLYSIS [None]
  - THIRST DECREASED [None]
